FAERS Safety Report 25835205 (Version 1)
Quarter: 2025Q3

REPORT INFORMATION
  Report Type: Spontaneous
  Country: EU (occurrence: EU)
  Receive Date: 20250923
  Receipt Date: 20250923
  Transmission Date: 20251021
  Serious: Yes (Other)
  Sender: RANBAXY
  Company Number: EU-AFSSAPS-RN2025000481

PATIENT
  Age: 55 Year
  Sex: Female

DRUGS (1)
  1. ATORVASTATIN [Suspect]
     Active Substance: ATORVASTATIN
     Indication: Prophylaxis
     Dosage: 40 MG / D
     Route: 048
     Dates: start: 20230905, end: 20250108

REACTIONS (1)
  - Axonal neuropathy [Recovered/Resolved]

NARRATIVE: CASE EVENT DATE: 20240318
